FAERS Safety Report 7528573-0 (Version None)
Quarter: 2011Q2

REPORT INFORMATION
  Report Type: 
  Country: None (occurrence: None)
  Receive Date: 20110607
  Receipt Date: 20040531
  Transmission Date: 20111010
  Serious: Yes (Life-Threatening, Hospitalization, Other)
  Sender: FDA-Public Use
  Company Number: PHNR2004AU00959

PATIENT
  Sex: Male

DRUGS (3)
  1. HALOPERIDOL [Concomitant]
     Dosage: 5 MG, QD
  2. CLOZARIL [Suspect]
     Indication: SCHIZOPHRENIA
     Dosage: 12.5 - 125 MG/QD
     Dates: start: 20040420, end: 20040507
  3. DIAZEPAM [Concomitant]
     Dosage: 10 MG, QD

REACTIONS (5)
  - HAEMATURIA [None]
  - PULMONARY EMBOLISM [None]
  - PYREXIA [None]
  - CHEST PAIN [None]
  - RENAL HAEMORRHAGE [None]
